FAERS Safety Report 6369506-2 (Version None)
Quarter: 2009Q3

REPORT INFORMATION
  Report Type: 
  Country: None (occurrence: None)
  Receive Date: 20090923
  Receipt Date: 20090916
  Transmission Date: 20100115
  Serious: Yes (Hospitalization, Other)
  Sender: FDA-Public Use
  Company Number: US-JNJFOC-20090905367

PATIENT
  Sex: Female
  Weight: 81.65 kg

DRUGS (5)
  1. DURAGESIC-100 [Suspect]
     Indication: PAIN
     Route: 062
     Dates: start: 20050101
  2. SYNTHROID [Concomitant]
     Indication: THYROID DISORDER
     Route: 048
  3. LYRICA [Concomitant]
     Indication: FIBROMYALGIA
     Route: 048
  4. DILAUDID [Concomitant]
     Indication: PAIN
     Route: 048
     Dates: start: 20050101
  5. PHENERGAN [Concomitant]
     Indication: NAUSEA
     Route: 054
     Dates: start: 20050101

REACTIONS (4)
  - CONVULSION [None]
  - FALL [None]
  - MYOCARDIAL INFARCTION [None]
  - PRINZMETAL ANGINA [None]
